FAERS Safety Report 25184911 (Version 1)
Quarter: 2025Q2

REPORT INFORMATION
  Report Type: Spontaneous
  Country: FR (occurrence: FR)
  Receive Date: 20250410
  Receipt Date: 20250410
  Transmission Date: 20250717
  Serious: Yes (Hospitalization)
  Sender: PFIZER
  Company Number: None

PATIENT
  Age: 89 Year
  Sex: Male

DRUGS (10)
  1. AZITHROMYCIN [Suspect]
     Active Substance: AZITHROMYCIN
     Indication: Lung disorder
     Dates: start: 20241203, end: 20241212
  2. CEFTRIAXONE SODIUM [Suspect]
     Active Substance: CEFTRIAXONE SODIUM
     Indication: Lung disorder
     Route: 042
     Dates: start: 20241201, end: 20241212
  3. ALFUZOSIN HYDROCHLORIDE [Concomitant]
     Active Substance: ALFUZOSIN HYDROCHLORIDE
  4. ATENOLOL [Concomitant]
     Active Substance: ATENOLOL
  5. DOLIPRANE [Concomitant]
     Active Substance: ACETAMINOPHEN
  6. DUPHALAC [Concomitant]
     Active Substance: LACTULOSE
  7. FUROSEMIDE [Concomitant]
     Active Substance: FUROSEMIDE
  8. PRADAXA [Concomitant]
     Active Substance: DABIGATRAN ETEXILATE MESYLATE
  9. REPAGLINIDE [Concomitant]
     Active Substance: REPAGLINIDE
  10. HUMALOG [Concomitant]
     Active Substance: INSULIN LISPRO

REACTIONS (3)
  - Rash maculo-papular [Recovering/Resolving]
  - Off label use [Unknown]
  - Product use issue [Unknown]

NARRATIVE: CASE EVENT DATE: 20241209
